FAERS Safety Report 23306588 (Version 1)
Quarter: 2023Q4

REPORT INFORMATION
  Report Type: Other
  Country: AU (occurrence: None)
  Receive Date: 20231218
  Receipt Date: 20231218
  Transmission Date: 20240110
  Serious: Yes (Hospitalization)
  Sender: FDA-Public Use
  Company Number: AU-ROCHE-3473678

PATIENT
  Age: 33 Year
  Sex: Female

DRUGS (1)
  1. OCRELIZUMAB [Suspect]
     Active Substance: OCRELIZUMAB
     Indication: Relapsing-remitting multiple sclerosis
     Route: 042
     Dates: start: 2018

REACTIONS (3)
  - Febrile neutropenia [Recovered/Resolved]
  - Infection [Unknown]
  - Maternal exposure during pregnancy [Unknown]
